FAERS Safety Report 19151045 (Version 1)
Quarter: 2021Q2

REPORT INFORMATION
  Report Type: Spontaneous
  Country: CZ (occurrence: CZ)
  Receive Date: 20210419
  Receipt Date: 20210419
  Transmission Date: 20210717
  Serious: Yes (Hospitalization)
  Sender: FDA-Public Use
  Company Number: CZ-TEVA-2021-CZ-1901820

PATIENT
  Age: 1 Decade
  Sex: Male

DRUGS (4)
  1. PIRACETAM [Suspect]
     Active Substance: PIRACETAM
     Indication: PARTIAL SEIZURES
     Route: 065
  2. LAMOTRIGINE. [Suspect]
     Active Substance: LAMOTRIGINE
     Indication: PARTIAL SEIZURES
     Route: 065
     Dates: start: 201512
  3. VIGABATRIN. [Suspect]
     Active Substance: VIGABATRIN
     Route: 065
  4. LEVETIRACETAM. [Suspect]
     Active Substance: LEVETIRACETAM
     Indication: PARTIAL SEIZURES
     Route: 065
     Dates: start: 201512

REACTIONS (1)
  - Drug resistance [Not Recovered/Not Resolved]
